FAERS Safety Report 5501544-1 (Version None)
Quarter: 2007Q4

REPORT INFORMATION
  Report Type: 
  Country: None (occurrence: None)
  Receive Date: 20071030
  Receipt Date: 20071024
  Transmission Date: 20080405
  Serious: Yes (Hospitalization, Other)
  Sender: FDA-Public Use
  Company Number: AT-ASTRAZENECA-2007PK02181

PATIENT
  Age: 17679 Day
  Sex: Female

DRUGS (5)
  1. NOLVADEX [Suspect]
     Indication: BREAST CANCER
     Route: 048
     Dates: start: 20040217, end: 20070206
  2. ZOLEDRONIC ACID [Suspect]
     Indication: BREAST CANCER
     Route: 042
     Dates: start: 20040309, end: 20070206
  3. DEANXIT [Concomitant]
  4. CONCOR [Concomitant]
  5. ZOLADEX [Concomitant]
     Indication: BREAST CANCER FEMALE
     Route: 058
     Dates: start: 20040219, end: 20070206

REACTIONS (1)
  - MENORRHAGIA [None]
